FAERS Safety Report 6752954-6 (Version None)
Quarter: 2010Q2

REPORT INFORMATION
  Report Type: 
  Country: None (occurrence: None)
  Receive Date: 20100603
  Receipt Date: 20100514
  Transmission Date: 20101027
  Serious: Yes (Hospitalization, Other)
  Sender: FDA-Public Use
  Company Number: US-BAYER-200927882NA

PATIENT
  Age: 23 Year
  Sex: Female
  Weight: 95 kg

DRUGS (7)
  1. YASMIN [Suspect]
     Indication: CONTRACEPTION
     Dates: start: 20040901, end: 20070802
  2. AZITHROMYCIN [Concomitant]
     Dates: start: 20070731
  3. IBUPROFEN [Concomitant]
     Dates: start: 20070604
  4. ZOLOFT [Concomitant]
     Indication: ANXIETY
     Dates: start: 20061101, end: 20100401
  5. DARVOCET [Concomitant]
     Indication: PAIN
     Dates: start: 20070606, end: 20080201
  6. PRILOSEC [Concomitant]
     Indication: GASTROOESOPHAGEAL REFLUX DISEASE
     Dates: start: 20020101
  7. BENZONATATE [Concomitant]
     Indication: COUGH
     Dates: start: 20070731

REACTIONS (8)
  - DYSPNOEA [None]
  - HYPOXIA [None]
  - INJURY [None]
  - MUSCLE SPASMS [None]
  - NON-CARDIAC CHEST PAIN [None]
  - PAIN [None]
  - PULMONARY EMBOLISM [None]
  - PULMONARY INFARCTION [None]
